FAERS Safety Report 11390576 (Version 1)
Quarter: 2015Q3

REPORT INFORMATION
  Report Type: Spontaneous
  Country: US (occurrence: US)
  Receive Date: 20150818
  Receipt Date: 20150818
  Transmission Date: 20151125
  Serious: Yes (Hospitalization)
  Sender: FDA-Public Use
  Company Number: US-ROCHE-1393652

PATIENT
  Sex: Male

DRUGS (3)
  1. RIBASPHERE [Suspect]
     Active Substance: RIBAVIRIN
     Indication: HEPATITIS C
     Dosage: 600 MG QAM, 400 MG QPM, DURATION 6 WEEKS
     Route: 048
     Dates: end: 20140429
  2. PEGASYS [Suspect]
     Active Substance: PEGINTERFERON ALFA-2A
     Indication: HEPATITIS C
     Dosage: DURATION 6 WEEKS
     Route: 058
     Dates: end: 20140429
  3. SOVALDI [Suspect]
     Active Substance: SOFOSBUVIR
     Indication: HEPATITIS C
     Dosage: DURATION 6 WEEKS
     Route: 048
     Dates: end: 20140429

REACTIONS (5)
  - Dyspnoea [Recovering/Resolving]
  - Haemoglobin decreased [Unknown]
  - Fatigue [Unknown]
  - Dizziness [Unknown]
  - Haematocrit decreased [Unknown]
